FAERS Safety Report 7055994-5 (Version None)
Quarter: 2010Q4

REPORT INFORMATION
  Report Type: 
  Country: None (occurrence: None)
  Receive Date: 20101021
  Receipt Date: 20101015
  Transmission Date: 20110411
  Serious: Yes (Other)
  Sender: FDA-Public Use
  Company Number: A0887648A

PATIENT
  Age: 61 Year
  Sex: Male

DRUGS (1)
  1. AVANDARYL [Suspect]
     Route: 048
     Dates: start: 20070901, end: 20100201

REACTIONS (2)
  - CARDIAC FAILURE CONGESTIVE [None]
  - RENAL FAILURE [None]
